FAERS Safety Report 13036077 (Version 1)
Quarter: 2016Q4

REPORT INFORMATION
  Report Type: Spontaneous
  Country: US (occurrence: US)
  Receive Date: 20161216
  Receipt Date: 20161216
  Transmission Date: 20170207
  Serious: No
  Sender: FDA-Public Use
  Company Number: US-PERRIGO-16US000841

PATIENT
  Age: 72 Year
  Sex: Female
  Weight: 63.49 kg

DRUGS (1)
  1. MUPIROCIN. [Suspect]
     Active Substance: MUPIROCIN
     Indication: PRODUCT USED FOR UNKNOWN INDICATION
     Dosage: UNK, UNK
     Route: 045
     Dates: start: 20160127, end: 20160127

REACTIONS (2)
  - Drug administered at inappropriate site [Recovered/Resolved]
  - Tongue disorder [Unknown]

NARRATIVE: CASE EVENT DATE: 20160127
